FAERS Safety Report 5332589-2 (Version None)
Quarter: 2007Q2

REPORT INFORMATION
  Report Type: 
  Country: None (occurrence: None)
  Receive Date: 20070523
  Receipt Date: 20070521
  Transmission Date: 20071010
  Serious: Yes (Hospitalization, Disabling, Other)
  Sender: FDA-Public Use
  Company Number: JP-BOEHRINGER INGELHEIM PHARMACEUTICALS, INC.-2007-BP-05029NB

PATIENT
  Sex: Male
  Weight: 64 kg

DRUGS (7)
  1. MICARDIS [Suspect]
     Indication: HYPERTENSION
     Route: 048
     Dates: start: 20040101, end: 20061115
  2. TENORMIN [Suspect]
     Indication: HYPERTENSION
     Route: 048
     Dates: start: 20040101, end: 20061115
  3. NORVASC [Suspect]
     Indication: HYPERTENSION
     Route: 048
     Dates: start: 20040101, end: 20060115
  4. FLOMOX [Concomitant]
     Indication: CHEST X-RAY ABNORMAL
     Route: 048
     Dates: start: 20061010
  5. KIRPRES [Concomitant]
     Indication: CHEST X-RAY ABNORMAL
     Route: 048
     Dates: start: 20061010
  6. MUCOSOLVAN [Concomitant]
     Indication: CHEST X-RAY ABNORMAL
     Route: 048
     Dates: start: 20061010
  7. MEDICON [Concomitant]
     Indication: CHEST X-RAY ABNORMAL
     Route: 048
     Dates: start: 20061010

REACTIONS (3)
  - INTERSTITIAL LUNG DISEASE [None]
  - PNEUMOTHORAX [None]
  - PULMONARY ALVEOLAR HAEMORRHAGE [None]
